FAERS Safety Report 24111825 (Version 2)
Quarter: 2024Q3

REPORT INFORMATION
  Report Type: Spontaneous
  Country: US (occurrence: US)
  Receive Date: 20240718
  Receipt Date: 20240820
  Transmission Date: 20241017
  Serious: No
  Sender: SANOFI AVENTIS
  Company Number: US-SA-SAC20240716000052

PATIENT
  Age: 32 Year
  Sex: Male

DRUGS (1)
  1. ALTUVIIIO [Suspect]
     Active Substance: EFANESOCTOCOG ALFA
     Dosage: 4976 UNITS/6220 UNITS
     Route: 065

REACTIONS (3)
  - Haemorrhage [Unknown]
  - Haemorrhage [Unknown]
  - Arthritis [Unknown]

NARRATIVE: CASE EVENT DATE: 20240614
